FAERS Safety Report 21612746 (Version 1)
Quarter: 2022Q4

REPORT INFORMATION
  Report Type: Spontaneous
  Country: IT (occurrence: IT)
  Receive Date: 20221118
  Receipt Date: 20221118
  Transmission Date: 20230113
  Serious: Yes (Hospitalization, Other)
  Sender: FDA-Public Use
  Company Number: IT-EMA-DD-20221103-7180173-064206

PATIENT
  Age: 30 Year
  Sex: Male

DRUGS (12)
  1. CLOZAPINE [Suspect]
     Active Substance: CLOZAPINE
     Indication: Psychotic symptom
     Dosage: 125 MILLIGRAM, ONCE A DAY(125 MILLIGRAM, QD)
     Route: 065
  2. CLOZAPINE [Suspect]
     Active Substance: CLOZAPINE
     Dosage: 50 MILLIGRAM, QD
     Route: 065
  3. AMISULPRIDE [Suspect]
     Active Substance: AMISULPRIDE
     Indication: Psychotic symptom
     Dosage: 600 MILLIGRAM, ONCE A DAY(600 MILLIGRAM, QD)
     Route: 065
  4. VALPROATE SODIUM [Suspect]
     Active Substance: VALPROATE SODIUM
     Indication: Psychotic symptom
     Dosage: 1500 MILLIGRAM, ONCE A DAY
     Route: 065
  5. SUBOXONE [Suspect]
     Active Substance: BUPRENORPHINE HYDROCHLORIDE\NALOXONE HYDROCHLORIDE
     Indication: Drug abuse
     Dosage: UNK
     Route: 065
  6. CLOTHIAPINE [Suspect]
     Active Substance: CLOTHIAPINE
     Indication: Psychotic symptom
     Dosage: 60 MILLIGRAM(60 MILLIGRAM, UNKNOWN)
     Route: 065
  7. CLOTHIAPINE [Suspect]
     Active Substance: CLOTHIAPINE
     Dosage: 90 MILLIGRAM, ONCE A DAY(90 MILLIGRAM, QD)
     Route: 065
  8. CLOTHIAPINE [Suspect]
     Active Substance: CLOTHIAPINE
     Dosage: 100 MILLIGRAM, UNKNOWN
     Route: 065
  9. CLONAZEPAM [Suspect]
     Active Substance: CLONAZEPAM
     Indication: Psychotic symptom
     Dosage: 4 MILLIGRAM, ONCE A DAY
     Route: 065
  10. CHLORPROMAZINE [Suspect]
     Active Substance: CHLORPROMAZINE
     Indication: Psychotic symptom
     Dosage: 150 MILLIGRAM, ONCE A DAY(150 MILLIGRAM, QD)
     Route: 065
  11. HALOPERIDOL [Suspect]
     Active Substance: HALOPERIDOL
     Indication: Psychotic symptom
     Dosage: 6 MILLIGRAM, ONCE A DAY(6 MILLIGRAM, QD)
     Route: 048
  12. ZUCLOPENTHIXOL [Suspect]
     Active Substance: ZUCLOPENTHIXOL
     Indication: Psychotic symptom
     Dosage: 200 MILLIGRAM, ONCE A DAY
     Route: 065

REACTIONS (11)
  - Insomnia [Recovered/Resolved]
  - Restlessness [Recovered/Resolved]
  - Intentional self-injury [Recovered/Resolved]
  - Psychomotor hyperactivity [Recovered/Resolved]
  - Psychotic symptom [Recovered/Resolved]
  - Priapism [Recovered/Resolved]
  - Suicide attempt [Recovered/Resolved]
  - Borderline personality disorder [Unknown]
  - Drug withdrawal syndrome [Unknown]
  - Antisocial personality disorder [Unknown]
  - Substance abuse [Recovered/Resolved]
